FAERS Safety Report 7492704-1 (Version None)
Quarter: 2011Q2

REPORT INFORMATION
  Report Type: 
  Country: None (occurrence: None)
  Receive Date: 20110519
  Receipt Date: 20110512
  Transmission Date: 20111010
  Serious: Yes (Other)
  Sender: FDA-Public Use
  Company Number: JP-NOVOPROD-328048

PATIENT
  Age: 39 Year
  Sex: Male
  Weight: 92 kg

DRUGS (1)
  1. VICTOZA [Suspect]
     Indication: TYPE 2 DIABETES MELLITUS
     Dosage: 0.9 MG, QD
     Route: 058

REACTIONS (1)
  - REFLUX OESOPHAGITIS [None]
